FAERS Safety Report 10698771 (Version 3)
Quarter: 2015Q3

REPORT INFORMATION
  Report Type: Spontaneous
  Country: US (occurrence: US)
  Receive Date: 20150108
  Receipt Date: 20150921
  Transmission Date: 20151125
  Serious: Yes (Hospitalization, Other)
  Sender: FDA-Public Use
  Company Number: US-GLAXOSMITHKLINE-US2014GSK045871

PATIENT
  Age: 61 Year
  Sex: Female

DRUGS (6)
  1. METFORM [Concomitant]
  2. ADVAIR HFA [Suspect]
     Active Substance: FLUTICASONE PROPIONATE\SALMETEROL XINAFOATE
     Indication: CHRONIC OBSTRUCTIVE PULMONARY DISEASE
     Dosage: UNK, U
     Route: 055
     Dates: start: 2009
  3. ADVAIR HFA [Suspect]
     Active Substance: FLUTICASONE PROPIONATE\SALMETEROL XINAFOATE
     Indication: ASTHMA
     Dosage: 1 PUFF(S), BID
     Route: 055
  4. LISINOPRIL. [Concomitant]
     Active Substance: LISINOPRIL
  5. VICTOZA [Concomitant]
     Active Substance: LIRAGLUTIDE
  6. ALBUTEROL SULFATE. [Concomitant]
     Active Substance: ALBUTEROL SULFATE

REACTIONS (9)
  - Hospitalisation [Unknown]
  - Drug dose omission [Unknown]
  - Hernia repair [Recovering/Resolving]
  - Emergency care [Unknown]
  - Abscess [Unknown]
  - Wound infection [Unknown]
  - Incorrect dose administered [Unknown]
  - Skin necrosis [Recovered/Resolved]
  - Hernia [Unknown]

NARRATIVE: CASE EVENT DATE: 2015
